FAERS Safety Report 13947229 (Version 1)
Quarter: 2017Q3

REPORT INFORMATION
  Report Type: Spontaneous
  Country: CN (occurrence: CN)
  Receive Date: 20170907
  Receipt Date: 20170907
  Transmission Date: 20171128
  Serious: Yes (Death, Other)
  Sender: FDA-Public Use
  Company Number: PHHY2017CN131802

PATIENT
  Age: 32 Year
  Sex: Female

DRUGS (12)
  1. GENTAMYCIN [Concomitant]
     Active Substance: GENTAMICIN
     Indication: PRODUCT USED FOR UNKNOWN INDICATION
     Dosage: 80000 IU, UNK
     Route: 048
  2. GANCICLOVIR. [Concomitant]
     Active Substance: GANCICLOVIR
     Indication: PRODUCT USED FOR UNKNOWN INDICATION
     Dosage: 5 MG/KG, Q12H
     Route: 042
  3. CYCLOPHOSPHAMIDE. [Concomitant]
     Active Substance: CYCLOPHOSPHAMIDE
     Indication: BONE MARROW CONDITIONING REGIMEN
     Dosage: UNK
     Route: 065
  4. SULPHAMETHOXAZOLE [Concomitant]
     Active Substance: SULFAMETHOXAZOLE
     Indication: PRODUCT USED FOR UNKNOWN INDICATION
     Dosage: 0.4 G, QD
     Route: 048
  5. NORFLOXACIN [Concomitant]
     Active Substance: NORFLOXACIN
     Indication: PRODUCT USED FOR UNKNOWN INDICATION
     Dosage: 0.2 G, TID
     Route: 048
  6. CHLORHEXIDINE ACETATE [Concomitant]
     Active Substance: CHLORHEXIDINE ACETATE
     Indication: PRODUCT USED FOR UNKNOWN INDICATION
     Dosage: UNK (GARGLING THREE TIMES PER DAY USING 0.02%)
     Route: 065
  7. MYCOPHENOLATE MOFETIL. [Suspect]
     Active Substance: MYCOPHENOLATE MOFETIL
     Indication: STEM CELL TRANSPLANT
     Dosage: UNK
     Route: 065
  8. CHLORHEXIDINE ACETATE [Concomitant]
     Active Substance: CHLORHEXIDINE ACETATE
     Indication: PRODUCT USED FOR UNKNOWN INDICATION
     Dosage: UNK, QN (PERINEAL BATHING ONCE PER NIGHT)
     Route: 065
  9. MYCOPHENOLATE MOFETIL. [Suspect]
     Active Substance: MYCOPHENOLATE MOFETIL
     Indication: IMMUNOSUPPRESSANT DRUG THERAPY
  10. GENTAMYCIN [Concomitant]
     Active Substance: GENTAMICIN
     Indication: PRODUCT USED FOR UNKNOWN INDICATION
     Dosage: UNK, TID (BOTH THE EYES)
     Route: 047
  11. FLUCONAZOLE. [Concomitant]
     Active Substance: FLUCONAZOLE
     Indication: PRODUCT USED FOR UNKNOWN INDICATION
     Dosage: 0.2 G, QD
     Route: 048
  12. CHLORTETRACYCLINE [Concomitant]
     Active Substance: CHLORTETRACYCLINE
     Indication: PRODUCT USED FOR UNKNOWN INDICATION
     Dosage: UNK (BOTH NOSTRILS AND EXTERNAL ACOUSTIC MEATUS)
     Route: 065

REACTIONS (2)
  - Renal failure [Fatal]
  - Therapeutic response decreased [Unknown]
